FAERS Safety Report 5095219-3 (Version None)
Quarter: 2006Q3

REPORT INFORMATION
  Report Type: 
  Country: None (occurrence: None)
  Receive Date: 20060830
  Receipt Date: 20060816
  Transmission Date: 20061208
  Serious: Yes (Hospitalization)
  Sender: FDA-Public Use
  Company Number: US-2006-021429

PATIENT
  Age: 36 Year
  Sex: Female
  Weight: 77 kg

DRUGS (23)
  1. CAMPATH [Suspect]
     Indication: LIVER TRANSPLANT
     Dosage: 30 MG, 1  DOSE D+4, INTRAVENOUS
     Route: 042
     Dates: start: 20051026, end: 20051026
  2. TACROLIMUS(TACROLIMUS) [Suspect]
     Indication: LIVER TRANSPLANT
     Dosage: 2 MG, 2X/DAY, ORAL; 5 MG, 2X/DAY, ORAL
     Route: 048
     Dates: start: 20051026
  3. NEORAL [Concomitant]
  4. GANCICLOVIR [Concomitant]
  5. HUMULIN (INSULIN ISOPHANE, HUMAN BIOSYNTHETIC, INSULIN HUMAN) [Concomitant]
  6. MORPHINE [Concomitant]
  7. ULTRAM [Concomitant]
  8. NEUPOGEN [Concomitant]
  9. AVANDIA [Concomitant]
  10. ASPIRIN [Concomitant]
  11. SODIUM BICARBONATE IN PLASTIC CONTAINER [Concomitant]
  12. MIDRIN (ISOMETHEPTENE, DICHLORALPHENAZONE) [Concomitant]
  13. LORTAB [Concomitant]
  14. IMITREX CERENEX (SUMATRIPTAN SUCCINATE) [Concomitant]
  15. SYNTHROID [Concomitant]
  16. EFFEXOR XR [Concomitant]
  17. VALCYTE [Concomitant]
  18. DAPSONE [Concomitant]
  19. BACTRIM DS [Concomitant]
  20. ZOLOFT [Concomitant]
  21. NORCO (HYDROCODONE BITARTRATE) [Concomitant]
  22. CHLORAL HYDRATE (CHLORAL HYDRATE) [Concomitant]
  23. VALIUM [Concomitant]

REACTIONS (5)
  - BLOOD GLUCOSE INCREASED [None]
  - BLOOD UREA INCREASED [None]
  - LIVER TRANSPLANT REJECTION [None]
  - MARROW HYPERPLASIA [None]
  - PANCYTOPENIA [None]
